FAERS Safety Report 26206108 (Version 1)
Quarter: 2025Q4

REPORT INFORMATION
  Report Type: Spontaneous
  Country: US (occurrence: US)
  Receive Date: 20251229
  Receipt Date: 20251229
  Transmission Date: 20260118
  Serious: Yes (Hospitalization, Other)
  Sender: TAKEDA
  Company Number: US-TAKEDA-2025TUS117784

PATIENT
  Age: 20 Year
  Sex: Male

DRUGS (1)
  1. COLCHICINE [Suspect]
     Active Substance: COLCHICINE
     Indication: Suicide attempt
     Dosage: 72 MILLIGRAM

REACTIONS (4)
  - Suicide attempt [Unknown]
  - Pulseless electrical activity [Unknown]
  - Intentional overdose [Unknown]
  - Toxicity to various agents [Unknown]
